FAERS Safety Report 9189745 (Version 1)
Quarter: 2013Q1

REPORT INFORMATION
  Report Type: Spontaneous
  Country: US (occurrence: US)
  Receive Date: 20130326
  Receipt Date: 20130326
  Transmission Date: 20140127
  Serious: No
  Sender: FDA-Public Use
  Company Number: US-BAYER-2013-031762

PATIENT
  Age: 25 Year
  Sex: Female

DRUGS (2)
  1. YAZ [Suspect]
     Indication: ACNE
     Dosage: 1 DF, QD
     Route: 048
     Dates: start: 201302
  2. YAZ [Suspect]
     Indication: CONTRACEPTION

REACTIONS (7)
  - Abdominal pain upper [None]
  - Menstrual disorder [None]
  - Irritability [None]
  - Emotional disorder [None]
  - Emotional distress [None]
  - Mood altered [None]
  - Contusion [None]
